FAERS Safety Report 5281178-7 (Version None)
Quarter: 2007Q1

REPORT INFORMATION
  Report Type: 
  Country: None (occurrence: None)
  Receive Date: 20070323
  Receipt Date: 20070309
  Transmission Date: 20070707
  Serious: Yes (Hospitalization)
  Sender: FDA-Public Use
  Company Number: T200700304

PATIENT
  Age: 55 Year
  Sex: Male
  Weight: 101 kg

DRUGS (1)
  1. OPTIRAY 300 [Suspect]
     Indication: COMPUTERISED TOMOGRAM ABDOMEN
     Dosage: 120 ML, SINGLE, INTRAVENOUS
     Route: 042
     Dates: start: 20061221, end: 20061221

REACTIONS (3)
  - ANGIOEDEMA [None]
  - ERYTHEMA [None]
  - FACE OEDEMA [None]
